FAERS Safety Report 10802020 (Version 1)
Quarter: 2015Q1

REPORT INFORMATION
  Report Type: Spontaneous
  Country: US (occurrence: US)
  Receive Date: 20150217
  Receipt Date: 20150217
  Transmission Date: 20150721
  Serious: Yes (Death)
  Sender: FDA-Public Use
  Company Number: US-BANPHARM-20153439

PATIENT
  Age: 77 Year
  Sex: Female

DRUGS (1)
  1. LIDOCAINE HYDROCHLORIDE UNKNOWN PRODUCT [Suspect]
     Active Substance: LIDOCAINE HYDROCHLORIDE
     Route: 051

REACTIONS (12)
  - Cardiac arrest [None]
  - Renal disorder [None]
  - Accidental death [None]
  - Blood pressure systolic increased [None]
  - Emphysema [None]
  - Toxicity to various agents [None]
  - Medication error [None]
  - Unresponsive to stimuli [None]
  - Seizure [None]
  - Congestive cardiomyopathy [None]
  - Wrong drug administered [Fatal]
  - Bradycardia [None]
